FAERS Safety Report 14698270 (Version 9)
Quarter: 2018Q3

REPORT INFORMATION
  Report Type: Spontaneous
  Country: PT (occurrence: PT)
  Receive Date: 20180330
  Receipt Date: 20180808
  Transmission Date: 20181010
  Serious: Yes (Hospitalization)
  Sender: FDA-Public Use
  Company Number: PT-TEVA-2018-PT-875039

PATIENT
  Age: 31 Year
  Sex: Female

DRUGS (10)
  1. COTRIMOXAZOLE [Suspect]
     Active Substance: SULFAMETHOXAZOLE\TRIMETHOPRIM
     Indication: PRODUCT USED FOR UNKNOWN INDICATION
     Route: 065
  2. RITONAVIR. [Suspect]
     Active Substance: RITONAVIR
     Indication: HIV INFECTION
     Dosage: 2 DOSAGE FORMS DAILY; 2 UNK, QD (BID)
     Route: 065
  3. VALGANCICLOVIR. [Suspect]
     Active Substance: VALGANCICLOVIR
     Indication: HIV INFECTION
     Route: 065
  4. METHYLDOPA. [Suspect]
     Active Substance: METHYLDOPA
     Indication: PRODUCT USED FOR UNKNOWN INDICATION
     Route: 065
  5. EMTRICITABINE W/TENOFOVIR [Suspect]
     Active Substance: EMTRICITABINE\TENOFOVIR DISOPROXIL
     Indication: HIV INFECTION
     Route: 065
  6. OMEPRAZOLE. [Suspect]
     Active Substance: OMEPRAZOLE
     Indication: PRODUCT USED FOR UNKNOWN INDICATION
     Route: 065
  7. PREDNISONE. [Suspect]
     Active Substance: PREDNISONE
     Indication: PRODUCT USED FOR UNKNOWN INDICATION
     Route: 065
  8. CALCIUM FOLINATE [Suspect]
     Active Substance: LEUCOVORIN CALCIUM
     Indication: PRODUCT USED FOR UNKNOWN INDICATION
     Route: 065
  9. DARUNAVIR [Suspect]
     Active Substance: DARUNAVIR
     Indication: HIV INFECTION
     Dosage: 2 DF, QD
     Route: 065
  10. DOLUTEGRAVIR TABLET [Suspect]
     Active Substance: DOLUTEGRAVIR
     Indication: HIV INFECTION
     Dosage: 100 MILLIGRAM DAILY;
     Route: 065

REACTIONS (3)
  - Live birth [Unknown]
  - Maternal exposure during pregnancy [Unknown]
  - Pre-eclampsia [Unknown]
